FAERS Safety Report 4591930-9 (Version None)
Quarter: 2005Q1

REPORT INFORMATION
  Report Type: 
  Country: None (occurrence: None)
  Receive Date: 20050225
  Receipt Date: 20050216
  Transmission Date: 20050727
  Serious: Yes (Hospitalization)
  Sender: FDA-Public Use
  Company Number: GB-MERCK-0502GBR00171

PATIENT

DRUGS (1)
  1. PRIMAXIN [Suspect]
     Route: 042
     Dates: start: 20050201

REACTIONS (1)
  - MEDICATION ERROR [None]
